FAERS Safety Report 5058244-4 (Version None)
Quarter: 2006Q3

REPORT INFORMATION
  Report Type: 
  Country: None (occurrence: None)
  Receive Date: 20060721
  Receipt Date: 20060710
  Transmission Date: 20061208
  Serious: Yes (Other)
  Sender: FDA-Public Use
  Company Number: PHBS2006BE10250

PATIENT
  Sex: Female

DRUGS (2)
  1. TOFRANIL [Suspect]
     Dosage: 25 MG, QID
     Route: 048
  2. ANTIHYPERTENSIVE DRUGS [Concomitant]
     Route: 065

REACTIONS (5)
  - DRUG DEPENDENCE [None]
  - DRUG WITHDRAWAL SYNDROME [None]
  - HEADACHE [None]
  - NERVOUSNESS [None]
  - NIGHT SWEATS [None]
